FAERS Safety Report 7896901-2 (Version None)
Quarter: 2011Q4

REPORT INFORMATION
  Report Type: 
  Country: None (occurrence: None)
  Receive Date: 20111107
  Receipt Date: 20111003
  Transmission Date: 20120403
  Serious: Yes (Other)
  Sender: FDA-Public Use
  Company Number: US-BAYER-2010-006102

PATIENT
  Sex: Female
  Weight: 55.782 kg

DRUGS (9)
  1. YASMIN [Suspect]
     Indication: ACNE
     Dosage: UNK
     Dates: start: 20050101, end: 20100101
  2. ADVAIR DISKUS 100/50 [Concomitant]
     Indication: ASTHMA
     Dosage: UNK UNK, BID
     Route: 055
  3. ALBUTEROL [Concomitant]
     Indication: ASTHMA
  4. DROSPIRENONE AND ETHINYL ESTRADIOL [Suspect]
     Indication: ACNE
     Dosage: UNK
     Dates: start: 20080101, end: 20100101
  5. PROAIR HFA [Concomitant]
     Indication: ASTHMA
     Dosage: UNK
     Dates: start: 20080101, end: 20100101
  6. NASAREL [Concomitant]
     Indication: MULTIPLE ALLERGIES
     Dosage: UNK
     Dates: start: 19950101, end: 20100101
  7. SINGULAIR [Concomitant]
     Indication: ASTHMA
     Dosage: 10 MG, QD
     Dates: start: 19950101, end: 20100101
  8. PAROXETINE HCL [Concomitant]
     Indication: ANXIETY
     Dosage: 20 MG, QD
     Dates: start: 20070101, end: 20100101
  9. NAPROXEN [Concomitant]

REACTIONS (11)
  - INJURY [None]
  - DISCOMFORT [None]
  - GALLBLADDER DISORDER [None]
  - ABDOMINAL PAIN [None]
  - CHOLECYSTITIS CHRONIC [None]
  - FEAR [None]
  - CHOLELITHIASIS [None]
  - EMOTIONAL DISTRESS [None]
  - ANXIETY [None]
  - BILIARY COLIC [None]
  - PAIN [None]
